FAERS Safety Report 8611093-X (Version None)
Quarter: 2012Q3

REPORT INFORMATION
  Report Type: 
  Country: None (occurrence: None)
  Receive Date: 20120822
  Receipt Date: 20120809
  Transmission Date: 20120928
  Serious: Yes (Hospitalization)
  Sender: FDA-Public Use
  Company Number: FR-SANOFI-AVENTIS-2012SA057369

PATIENT
  Age: 60 Year
  Sex: Male

DRUGS (7)
  1. CORTICOSTEROIDS [Suspect]
     Indication: IMMUNOSUPPRESSION
     Dosage: INDUCTION IMMUNOSUPPRESSION
     Route: 065
  2. CYCLOSPORINE [Suspect]
     Dosage: MAINTAINENCE IMMUNOSUPPRESSION
     Route: 065
  3. CORTICOSTEROIDS [Suspect]
     Dosage: MAINTAINENCE IMMUNOSUPPRESSION
     Route: 065
  4. RIFAMPICIN [Suspect]
     Route: 065
  5. MYCOPHENOLATE MEFETIL [Suspect]
     Indication: IMMUNOSUPPRESSION
     Route: 065
     Dates: start: 20040101
  6. CYCLOSPORINE [Suspect]
     Indication: IMMUNOSUPPRESSION
     Dosage: INDUCTION IMMUNOSUPPRESSION
     Route: 065
  7. IMMUNOSUPPRESSIVE AGENTS [Concomitant]

REACTIONS (10)
  - ASTHENIA [None]
  - PLEURAL EFFUSION [None]
  - KIDNEY TRANSPLANT REJECTION [None]
  - LUNG NEOPLASM [None]
  - REBOUND EFFECT [None]
  - RHODOCOCCUS INFECTION [None]
  - PYREXIA [None]
  - COMPLICATIONS OF TRANSPLANT SURGERY [None]
  - COUGH [None]
  - THROMBOCYTOPENIA [None]
